FAERS Safety Report 16850970 (Version 2)
Quarter: 2019Q4

REPORT INFORMATION
  Report Type: Spontaneous
  Country: US (occurrence: US)
  Receive Date: 20190925
  Receipt Date: 20191220
  Transmission Date: 20200122
  Serious: No
  Sender: FDA-Public Use
  Company Number: US-THERAPEUTICSMD-2019TMD02924

PATIENT
  Age: 74 Year
  Sex: Female
  Weight: 61.68 kg

DRUGS (8)
  1. IMVEXXY [Suspect]
     Active Substance: ESTRADIOL
     Indication: PROPHYLAXIS URINARY TRACT INFECTION
     Dosage: 1 DOSAGE UNITS, 3X/WEEK (OR WHATEVER WAS ON THE DIRECTIONS OF THE SAMPLES); EARLIER IN THE DAY
     Route: 067
     Dates: start: 20190318, end: 20190410
  2. TACROLIMUS. [Concomitant]
     Active Substance: TACROLIMUS
     Dosage: 18 MG, 2X/DAY (IN THE MORNING AND AT NIGHT)
  3. PREDNISONE. [Concomitant]
     Active Substance: PREDNISONE
     Dosage: 5 MG, 1X/DAY
  4. LISINOPRIL. [Concomitant]
     Active Substance: LISINOPRIL
     Dosage: 5 MG, 1X/DAY
  5. PENICILLIN [Concomitant]
     Active Substance: PENICILLIN
  6. TYLENOL [Concomitant]
     Active Substance: ACETAMINOPHEN
  7. BIOFREEZE GEL [Concomitant]
  8. IMVEXXY [Suspect]
     Active Substance: ESTRADIOL
     Indication: OESTROGEN REPLACEMENT THERAPY

REACTIONS (8)
  - Pruritus [Recovered/Resolved]
  - Burning sensation [Recovered/Resolved]
  - Asthenia [Recovered/Resolved]
  - Depression [Recovered/Resolved]
  - Insomnia [Recovered/Resolved]
  - Restless legs syndrome [Recovered/Resolved]
  - Stress [Recovered/Resolved]
  - Off label use [Recovered/Resolved]

NARRATIVE: CASE EVENT DATE: 2019
